FAERS Safety Report 10889103 (Version 1)
Quarter: 2015Q1

REPORT INFORMATION
  Report Type: Report from Study
  Country: US (occurrence: US)
  Receive Date: 20150305
  Receipt Date: 20150305
  Transmission Date: 20150721
  Serious: Yes (Death)
  Sender: FDA-Public Use
  Company Number: US-SA-2014SA070458

PATIENT
  Age: 42 Year
  Sex: Female

DRUGS (1)
  1. AUBAGIO [Suspect]
     Active Substance: TERIFLUNOMIDE
     Indication: MULTIPLE SCLEROSIS
     Route: 048
     Dates: start: 20140422, end: 201411

REACTIONS (5)
  - Gastrooesophageal reflux disease [Unknown]
  - Drug dose omission [Unknown]
  - Death [Fatal]
  - Dysgeusia [Unknown]
  - Appetite disorder [Unknown]

NARRATIVE: CASE EVENT DATE: 201411
